FAERS Safety Report 25970505 (Version 2)
Quarter: 2025Q4

REPORT INFORMATION
  Report Type: Spontaneous
  Country: JP (occurrence: JP)
  Receive Date: 20251028
  Receipt Date: 20251125
  Transmission Date: 20260118
  Serious: Yes (Other)
  Sender: AMGEN
  Company Number: JP-AMGEN-JPNSP2025209225

PATIENT

DRUGS (3)
  1. MVASI [Suspect]
     Active Substance: BEVACIZUMAB-AWWB
     Indication: Rectal cancer
     Dosage: UNK (DRIP INFUSION)
     Route: 040
  2. CAPECITABINE [Concomitant]
     Active Substance: CAPECITABINE
     Route: 048
  3. FLUOROURACIL\IRINOTECAN\LEUCOVORIN\OXALIPLATIN [Concomitant]
     Active Substance: FLUOROURACIL\IRINOTECAN\LEUCOVORIN\OXALIPLATIN

REACTIONS (4)
  - Post procedural complication [Unknown]
  - Anastomotic leak [Unknown]
  - Procedural haemorrhage [Unknown]
  - Failure to anastomose [Unknown]
